FAERS Safety Report 8045293 (Version 4)
Quarter: 2014Q1

REPORT INFORMATION
  Report Type: Report from Study
  Country: US (occurrence: US)
  Receive Date: 20110720
  Receipt Date: 20140204
  Transmission Date: 20141002
  Serious: Yes (Other)
  Sender: FDA-Public Use
  Company Number: US-UCBSA-018327

PATIENT
  Sex: Male
  Weight: 7.71 kg

DRUGS (6)
  1. KEPPRA [Suspect]
     Indication: EPILEPSY
     Dosage: PRIOR TO CONCEPTION
     Route: 064
  2. KEPPRA [Suspect]
     Indication: EPILEPSY
     Route: 063
  3. FOLIC ACID [Concomitant]
     Indication: PREGNANCY
     Route: 064
  4. FOLIC ACID [Concomitant]
     Indication: PREGNANCY
     Dosage: 4MG OF EXTRA FOLIC ACID
     Route: 064
  5. PRENATAL VITAMINS [Concomitant]
     Indication: PREGNANCY
     Dosage: 1 TAB QD
     Route: 064
  6. ZOFRAN [Concomitant]
     Indication: VOMITING IN PREGNANCY
     Route: 064
     Dates: start: 201007

REACTIONS (5)
  - Premature baby [Recovered/Resolved]
  - Ultrasound antenatal screen abnormal [Unknown]
  - Calcinosis [Unknown]
  - Foetal exposure during pregnancy [Recovered/Resolved]
  - Exposure during breast feeding [Unknown]
